FAERS Safety Report 5714795-8 (Version None)
Quarter: 2008Q2

REPORT INFORMATION
  Report Type: 
  Country: None (occurrence: None)
  Receive Date: 20080423
  Receipt Date: 20070418
  Transmission Date: 20081010
  Serious: Yes (Death)
  Sender: FDA-Public Use
  Company Number: DK-ROCHE-493749

PATIENT
  Sex: Male

DRUGS (18)
  1. CAPECITABINE [Suspect]
     Dosage: 800-1200 MG/M2 D1-7 AND D15-21 Q4W AS PER PROTOCOL. LAST DOSE BEFORE SAE 30 MARCH 2007.
     Route: 065
     Dates: start: 20070109
  2. GEMZAR [Suspect]
     Dosage: IV INFUSION OF 800-1200 MG/M2 D 1+14 Q4W AS PER PROTOCOL.LAST DOSE BEFORE SAE WAS 23 MARCH 2007.
     Route: 042
     Dates: start: 20070109
  3. ELOXATIN [Suspect]
     Dosage: 60-85 MG/M2 D1+14 Q4W AS PER PROTOCOL.LAST DOSE BEFORE SAE WAS 23 MARCH 2007
     Route: 065
     Dates: start: 20070109
  4. PINEX [Concomitant]
     Indication: PAIN
     Route: 048
  5. LANSOPRAZOLE [Concomitant]
     Dosage: REPORTED TO BE INDICATED FOR 'ACID'.
     Route: 048
  6. VENTOLIN [Concomitant]
     Indication: ASTHMA
     Dosage: DRUG NAME REPORTED AS ' VENTOLINE SPRAY'.
     Route: 048
  7. SERETIDE [Concomitant]
     Indication: ASTHMA
     Dosage: DRUG REPORTED AS ^SERETIDE SPRAY^. DOSING UNITS NOT REPORTED.
     Route: 048
  8. SERETIDE [Concomitant]
     Dosage: DRUG REPORTED AS ^SERETIDE SPRAY^. DOSING UNITS NOT REPORTED.
     Route: 048
  9. HEXALID [Concomitant]
     Route: 048
  10. VITAMIN B [Concomitant]
     Indication: VITAMIN SUPPLEMENTATION
     Dosage: DRUG REPORTED AS ^B-VIT^. DAILY DOSE REPORTED AS ^3 SFK DGL^.
     Route: 048
  11. LANSOPRAZOL [Concomitant]
     Dosage: GIVEN TWICE DAILY FROM 28 FEB 2007 - 06 MAR 2007 AND ONCE DAILY THEREAFTER. DRUG REPORTED AS ^LANZO+
     Route: 048
     Dates: start: 20070228
  12. PRIMPERAN INJ [Concomitant]
     Indication: NAUSEA
     Route: 048
     Dates: start: 20070228
  13. PICOLON [Concomitant]
     Indication: CONSTIPATION
     Route: 048
     Dates: start: 20070307
  14. PREDNISOLONE [Concomitant]
     Route: 048
     Dates: start: 20070228
  15. CONTALGIN [Concomitant]
     Indication: PAIN
     Route: 048
     Dates: start: 20070307
  16. MORPHINE [Concomitant]
     Indication: PAIN
     Dosage: DRUG REPORTED AS ^MORPHIN^.
     Route: 048
     Dates: start: 20070307
  17. IMOZOP [Concomitant]
     Route: 048
     Dates: start: 20070306
  18. 1 CONCOMITANT DRUG [Concomitant]
     Indication: ANTIEMETIC SUPPORTIVE CARE
     Dosage: GIVEN FROM 9-11 JANUARY 2007, 23-25 JANUARY 2007, 06-08 FEBRUARY 2007, 09-11 FEBRUARY 2007 + 20+
     Route: 048
     Dates: start: 20070109, end: 20070222

REACTIONS (1)
  - DEATH [None]
